FAERS Safety Report 14808620 (Version 1)
Quarter: 2018Q2

REPORT INFORMATION
  Report Type: Report from Study
  Country: US (occurrence: US)
  Receive Date: 20180425
  Receipt Date: 20180425
  Transmission Date: 20180711
  Serious: No
  Sender: FDA-Public Use
  Company Number: US-AMGEN-USASL2018019693

PATIENT
  Age: 56 Year
  Sex: Female

DRUGS (2)
  1. REPATHA [Suspect]
     Active Substance: EVOLOCUMAB
     Indication: HYPERCHOLESTEROLAEMIA
     Dosage: 420 MG, QMO
     Route: 065
  2. NITROGLYCERIN. [Concomitant]
     Active Substance: NITROGLYCERIN
     Indication: CHEST DISCOMFORT
     Dosage: UNK

REACTIONS (7)
  - Chest discomfort [Unknown]
  - Peripheral swelling [Unknown]
  - Influenza like illness [Unknown]
  - Pain in extremity [Unknown]
  - Dyspnoea [Unknown]
  - Feeling abnormal [Unknown]
  - Hypoaesthesia [Unknown]
